FAERS Safety Report 16101372 (Version 1)
Quarter: 2019Q1

REPORT INFORMATION
  Report Type: Spontaneous
  Country: ES (occurrence: ES)
  Receive Date: 20190321
  Receipt Date: 20190321
  Transmission Date: 20190418
  Serious: Yes (Other)
  Sender: FDA-Public Use
  Company Number: ES-PFIZER INC-2019119444

PATIENT
  Age: 66 Year
  Sex: Male

DRUGS (9)
  1. GABAPENTIN. [Interacting]
     Active Substance: GABAPENTIN
     Dosage: 300 MG, 1X/DAY
     Route: 048
     Dates: start: 2019
  2. ZYTRAM [Interacting]
     Active Substance: TRAMADOL HYDROCHLORIDE
     Indication: SCIATICA
     Dosage: 75 MG, 1X/DAY FOR FIRST WEEK 0-0-1
     Route: 048
     Dates: start: 201901, end: 2019
  3. NEBIVOLOL. [Concomitant]
     Active Substance: NEBIVOLOL
     Dosage: UNK
     Route: 048
  4. GABAPENTIN. [Suspect]
     Active Substance: GABAPENTIN
     Indication: SCIATICA
     Dosage: 300 MG, 1X/DAY FOR FIRST WEEK 0-0-1
     Route: 048
     Dates: start: 201901, end: 2019
  5. ZYTRAM [Interacting]
     Active Substance: TRAMADOL HYDROCHLORIDE
     Dosage: 75 MG, 2X/DAY (EVERY 12 HOURS) 1-0-1. FIRST WEEK 0-0-1 , SECOND WEEK 1-0-1 AND CONTINUE TILL THE REV
     Route: 048
     Dates: start: 2019
  6. ATORVASTATIN [Concomitant]
     Active Substance: ATORVASTATIN
     Dosage: UNK
     Route: 048
  7. ACETYLSALICYLIC ACID ENTERIC COATED [Concomitant]
     Active Substance: ASPIRIN
     Dosage: UNK
     Route: 048
  8. GABAPENTIN. [Interacting]
     Active Substance: GABAPENTIN
     Dosage: 300 MG, 2X/DAY
     Route: 048
     Dates: start: 2019, end: 2019
  9. ESCITALOPRAM [Interacting]
     Active Substance: ESCITALOPRAM OXALATE
     Indication: SCIATICA
     Dosage: 5 MG, ONCE (EVERY 24 HOURS) 1/2-0-0
     Route: 048
     Dates: start: 201901, end: 20190223

REACTIONS (2)
  - Drug interaction [Unknown]
  - Urinary retention [Recovered/Resolved]

NARRATIVE: CASE EVENT DATE: 20190128
